FAERS Safety Report 9192499 (Version 2)
Quarter: 2013Q2

REPORT INFORMATION
  Report Type: Spontaneous
  Country: US (occurrence: US)
  Receive Date: 20130327
  Receipt Date: 20130415
  Transmission Date: 20140414
  Serious: No
  Sender: FDA-Public Use
  Company Number: US-PFIZER INC-2013095409

PATIENT
  Age: 66 Year
  Sex: Male
  Weight: 76.19 kg

DRUGS (4)
  1. VFEND [Suspect]
     Indication: MENINGITIS FUNGAL
     Dosage: UNK
     Route: 042
     Dates: start: 20121122
  2. LYRICA [Concomitant]
     Indication: NERVE INJURY
     Dosage: 75 MG, 3X/DAY
     Route: 048
     Dates: start: 201105
  3. LYRICA [Concomitant]
     Indication: BACK PAIN
  4. ASPIRIN [Concomitant]
     Dosage: 81 MG, 1X/DAY

REACTIONS (3)
  - Chest discomfort [Recovering/Resolving]
  - Flatulence [Recovering/Resolving]
  - Oesophageal disorder [Recovering/Resolving]
